FAERS Safety Report 10023848 (Version 1)
Quarter: 2014Q1

REPORT INFORMATION
  Report Type: Spontaneous
  Country: US (occurrence: None)
  Receive Date: 20140304
  Receipt Date: 20140304
  Transmission Date: 20141002
  Serious: Yes (Other)
  Sender: FDA-Public Use
  Company Number: RB-52229-2013

PATIENT
  Sex: Male

DRUGS (1)
  1. BUPRENORPHINE W/NALOXONE [Suspect]
     Indication: PRODUCT USED FOR UNKNOWN INDICATION
     Dosage: DOSING DETAILS UNKNOWN
     Dates: start: 201303

REACTIONS (6)
  - Drug ineffective [None]
  - Hypoaesthesia [None]
  - Hyperhidrosis [None]
  - Nausea [None]
  - Diarrhoea [None]
  - Insomnia [None]
